FAERS Safety Report 8877627 (Version 2)
Quarter: 2014Q3

REPORT INFORMATION
  Report Type: Spontaneous
  Country: US (occurrence: US)
  Receive Date: 20121024
  Receipt Date: 20140902
  Transmission Date: 20150326
  Serious: Yes (Other)
  Sender: FDA-Public Use
  Company Number: PHEH2012US020703

PATIENT
  Sex: Female

DRUGS (6)
  1. ESTRING [Suspect]
     Active Substance: ESTRADIOL
     Dosage: UNK UKN, UNK
  2. SYNTHROID [Suspect]
     Active Substance: LEVOTHYROXINE SODIUM
     Dosage: UNK UKN, UNK
  3. CALTRATE [Suspect]
     Active Substance: CALCIUM CARBONATE
     Dosage: UNK UKN, UNK
  4. VOLTAREN [Suspect]
     Active Substance: DICLOFENAC SODIUM
     Dosage: UNK UKN, UNK
  5. ESTRADIOL. [Suspect]
     Active Substance: ESTRADIOL
     Dosage: UNK UKN, UNK
  6. IMURAN [Suspect]
     Active Substance: AZATHIOPRINE
     Dosage: UNK UKN, UNK

REACTIONS (3)
  - Drug ineffective [Unknown]
  - Systemic lupus erythematosus [Unknown]
  - Vaginal discharge [Unknown]
